FAERS Safety Report 5334074-0 (Version None)
Quarter: 2007Q2

REPORT INFORMATION
  Report Type: 
  Country: None (occurrence: None)
  Receive Date: 20070524
  Receipt Date: 20070517
  Transmission Date: 20071010
  Serious: Yes (Death)
  Sender: FDA-Public Use
  Company Number: FR-ABBOTT-07P-056-0364804-00

PATIENT
  Age: 87 Year
  Sex: Female

DRUGS (6)
  1. ODRIK [Suspect]
     Indication: CARDIAC FAILURE
     Route: 048
  2. DIGOXIN [Suspect]
     Indication: CARDIAC FAILURE
     Route: 048
  3. FELODIPINE [Suspect]
     Indication: HYPERTENSION
     Route: 048
  4. FUROSEMIDE [Suspect]
     Indication: CARDIAC FAILURE
     Route: 048
  5. DILTIAZEM HYDROCHLORIDE [Suspect]
     Indication: HYPERTENSION
     Route: 048
  6. PREDNISOLONE SODIUM SULFOBENZOATE [Concomitant]
     Indication: DRUG USE FOR UNKNOWN INDICATION

REACTIONS (4)
  - CARDIAC ARREST [None]
  - DRUG TOXICITY [None]
  - DYSPEPSIA [None]
  - RESPIRATORY ARREST [None]
